FAERS Safety Report 12317811 (Version 1)
Quarter: 2016Q2

REPORT INFORMATION
  Report Type: Report from Study
  Country: US (occurrence: US)
  Receive Date: 20160429
  Receipt Date: 20160429
  Transmission Date: 20160815
  Serious: No
  Sender: FDA-Public Use
  Company Number: PHEH2016US010097

PATIENT
  Sex: Male

DRUGS (1)
  1. ENTRESTO [Suspect]
     Active Substance: SACUBITRIL\VALSARTAN
     Indication: PRODUCT USED FOR UNKNOWN INDICATION
     Dosage: 24/26 MG, UNK
     Route: 065
     Dates: start: 20160329

REACTIONS (5)
  - Nasopharyngitis [Unknown]
  - Influenza [Unknown]
  - Fatigue [Unknown]
  - Pollakiuria [Unknown]
  - Productive cough [Unknown]
